FAERS Safety Report 8616351-0 (Version None)
Quarter: 2012Q3

REPORT INFORMATION
  Report Type: 
  Country: None (occurrence: None)
  Receive Date: 20120823
  Receipt Date: 20120817
  Transmission Date: 20120928
  Serious: Yes (Hospitalization, Other)
  Sender: FDA-Public Use
  Company Number: US-AMGEN-USASP2012040531

PATIENT
  Age: 14 Year
  Sex: Female
  Weight: 99.6 kg

DRUGS (14)
  1. NPLATE [Suspect]
     Dosage: 300 MUG, QWK
     Route: 058
     Dates: start: 20110207, end: 20110217
  2. NPLATE [Suspect]
     Dosage: 600 MUG, QWK
     Route: 058
     Dates: start: 20110310, end: 20110317
  3. PREDNISONE TAB [Concomitant]
     Dosage: 20 MG, QD
     Route: 048
     Dates: start: 20101221, end: 20101224
  4. NPLATE [Suspect]
     Indication: IDIOPATHIC THROMBOCYTOPENIC PURPURA
     Dosage: 100 MUG, QWK
     Route: 058
     Dates: start: 20101214, end: 20101228
  5. NPLATE [Suspect]
     Dosage: 250 MUG, QWK
     Route: 058
     Dates: start: 20110131, end: 20110207
  6. NPLATE [Suspect]
     Dosage: 500 MUG, QWK
     Route: 058
     Dates: start: 20110302, end: 20110302
  7. PREDNISONE TAB [Concomitant]
     Dosage: 20 MG, BID
     Route: 048
     Dates: start: 20101217, end: 20101220
  8. NPLATE [Suspect]
     Dosage: 200 MUG, QWK
     Route: 058
     Dates: start: 20101228, end: 20110104
  9. PREDNISONE TAB [Concomitant]
     Indication: PLATELET COUNT DECREASED
     Dosage: 40 MG, BID
     Route: 048
     Dates: start: 20101212, end: 20101216
  10. PREDNISONE TAB [Concomitant]
     Dosage: 10 MG, QD
     Route: 048
     Dates: start: 20101225, end: 20101227
  11. DEXAMETHASONE [Concomitant]
     Indication: PLATELET COUNT DECREASED
     Dosage: 40 MG, QD
     Route: 042
     Dates: start: 20110120, end: 20110121
  12. NPLATE [Suspect]
     Dosage: 200 MUG, QWK
     Route: 058
     Dates: start: 20110124, end: 20110131
  13. NPLATE [Suspect]
     Dosage: 400 MUG, QWK
     Route: 058
     Dates: start: 20110217, end: 20110217
  14. PREDNISONE TAB [Concomitant]
     Dosage: 10 MG, QD
     Route: 048
     Dates: start: 20101228, end: 20101230

REACTIONS (15)
  - RED BLOOD CELL MORPHOLOGY ABNORMAL [None]
  - PURPURA [None]
  - BLOOD SMEAR TEST ABNORMAL [None]
  - UNDERDOSE [None]
  - BODY TEMPERATURE INCREASED [None]
  - HAEMOLYSIS [None]
  - MENORRHAGIA [None]
  - POOR VENOUS ACCESS [None]
  - VIRAL INFECTION [None]
  - PYREXIA [None]
  - THERAPEUTIC RESPONSE DECREASED [None]
  - INJECTION SITE EXTRAVASATION [None]
  - BLOOD LACTATE DEHYDROGENASE INCREASED [None]
  - ABDOMINAL PAIN [None]
  - NAUSEA [None]
